FAERS Safety Report 7120002-4 (Version None)
Quarter: 2010Q4

REPORT INFORMATION
  Report Type: 
  Country: None (occurrence: None)
  Receive Date: 20101123
  Receipt Date: 20101116
  Transmission Date: 20110411
  Serious: Yes (Other)
  Sender: FDA-Public Use
  Company Number: SE-PFIZER INC-2010149168

PATIENT
  Age: 72 Year
  Sex: Male

DRUGS (4)
  1. LYRICA [Suspect]
     Dosage: 75 MG, 2X/DAY
     Dates: start: 20100601, end: 20100701
  2. LYRICA [Suspect]
     Dosage: 300 MG, 2X/DAY
     Dates: start: 20100701, end: 20101001
  3. AKINETON [Concomitant]
     Dosage: UNK
  4. FLUPENTIXOL DIHYDROCHLORIDE [Concomitant]
     Dosage: UNK

REACTIONS (3)
  - EXFOLIATIVE RASH [None]
  - RASH GENERALISED [None]
  - RASH PRURITIC [None]
